FAERS Safety Report 8069532-1 (Version None)
Quarter: 2012Q1

REPORT INFORMATION
  Report Type: 
  Country: None (occurrence: None)
  Receive Date: 20120125
  Receipt Date: 20120117
  Transmission Date: 20120608
  Serious: Yes (Hospitalization)
  Sender: FDA-Public Use
  Company Number: IT-TEVA-318518ISR

PATIENT
  Sex: Female

DRUGS (2)
  1. LEVOFLOXACIN [Suspect]
  2. CEFTAZIDIME [Suspect]

REACTIONS (3)
  - CLOSTRIDIUM COLITIS [None]
  - LARGE INTESTINE PERFORATION [None]
  - MEGACOLON [None]
